FAERS Safety Report 18683437 (Version 1)
Quarter: 2020Q4

REPORT INFORMATION
  Report Type: Report from Study
  Country: US (occurrence: US)
  Receive Date: 20201230
  Receipt Date: 20201230
  Transmission Date: 20210114
  Serious: Yes (Hospitalization, Other)
  Sender: FDA-Public Use
  Company Number: US-TAKEDA-2020TUS060555

PATIENT
  Sex: Male

DRUGS (1)
  1. PONATINIB [Suspect]
     Active Substance: PONATINIB
     Indication: NON-HODGKIN^S LYMPHOMA
     Dosage: 45 MILLIGRAM, QD
     Route: 048

REACTIONS (6)
  - SARS-CoV-2 test positive [Unknown]
  - Product dose omission issue [Unknown]
  - Off label use [Unknown]
  - Gastric infection [Unknown]
  - Muscular weakness [Unknown]
  - Myalgia [Unknown]
